FAERS Safety Report 9402486 (Version 1)
Quarter: 2013Q3

REPORT INFORMATION
  Report Type: Spontaneous
  Country: US (occurrence: None)
  Receive Date: 20130712
  Receipt Date: 20130712
  Transmission Date: 20140515
  Serious: Yes (Hospitalization, Other)
  Sender: FDA-Public Use
  Company Number: None

PATIENT
  Age: 59 Year
  Sex: Male
  Weight: 131.54 kg

DRUGS (2)
  1. COMBIVENT [Suspect]
     Indication: ASTHMA
     Dosage: 2 -PUFFS EVERY 4- HOURS AS NEEDS   EVEY 4-HOURS
     Route: 055
     Dates: start: 20130520, end: 20130606
  2. COMBIVENT [Suspect]
     Indication: EMPHYSEMA
     Dosage: 2 -PUFFS EVERY 4- HOURS AS NEEDS   EVEY 4-HOURS
     Route: 055
     Dates: start: 20130520, end: 20130606

REACTIONS (2)
  - Wheezing [None]
  - Drug ineffective [None]
